FAERS Safety Report 10722448 (Version 2)
Quarter: 2015Q1

REPORT INFORMATION
  Report Type: Spontaneous
  Country: US (occurrence: US)
  Receive Date: 20150119
  Receipt Date: 20150216
  Transmission Date: 20150721
  Serious: Yes (Other)
  Sender: FDA-Public Use
  Company Number: US-009507513-1501USA006354

PATIENT
  Age: 63 Year
  Sex: Male

DRUGS (6)
  1. PEGINTRON [Suspect]
     Active Substance: PEGINTERFERON ALFA-2B
     Dosage: 180 MCG/ML, WEEKLY
  2. TELAPREVIR [Suspect]
     Active Substance: TELAPREVIR
     Indication: CHRONIC HEPATITIS C
     Dosage: UNK
  3. MECHLORETHAMINE HYDROCHLORIDE [Concomitant]
     Active Substance: MECHLORETHAMINE HYDROCHLORIDE
     Indication: MYCOSIS FUNGOIDES STAGE I
     Route: 061
  4. REBETOL [Suspect]
     Active Substance: RIBAVIRIN
     Indication: CHRONIC HEPATITIS C
     Dosage: UNK
     Route: 048
  5. PEGINTRON [Suspect]
     Active Substance: PEGINTERFERON ALFA-2B
     Indication: CHRONIC HEPATITIS C
     Dosage: 180 MCG/ML, WEEKLY
  6. REBETOL [Suspect]
     Active Substance: RIBAVIRIN
     Dosage: UNK
     Route: 048

REACTIONS (1)
  - Pancytopenia [Recovering/Resolving]
